FAERS Safety Report 23887630 (Version 7)
Quarter: 2025Q3

REPORT INFORMATION
  Report Type: Report from Study
  Country: IN (occurrence: IN)
  Receive Date: 20240523
  Receipt Date: 20250718
  Transmission Date: 20251020
  Serious: Yes (Other)
  Sender: TAKEDA
  Company Number: IN-TAKEDA-2024TUS048518

PATIENT
  Sex: Male

DRUGS (2)
  1. VEDOLIZUMAB [Suspect]
     Active Substance: VEDOLIZUMAB
     Indication: Colitis ulcerative
  2. VEDOLIZUMAB [Suspect]
     Active Substance: VEDOLIZUMAB

REACTIONS (25)
  - Haematochezia [Unknown]
  - Eructation [Unknown]
  - Diarrhoea [Unknown]
  - Faeces soft [Unknown]
  - Mucous stools [Unknown]
  - Rectal haemorrhage [Unknown]
  - Abdominal distension [Unknown]
  - Frequent bowel movements [Unknown]
  - Weight decreased [Unknown]
  - Weight increased [Unknown]
  - Gastrointestinal motility disorder [Unknown]
  - Burning sensation [Unknown]
  - Proctalgia [Unknown]
  - Dyschezia [Unknown]
  - Sleep disorder [Unknown]
  - Cytomegalovirus infection [Unknown]
  - Anal haemorrhage [Unknown]
  - Flank pain [Unknown]
  - Myalgia [Unknown]
  - Abdominal pain [Unknown]
  - Asthenia [Unknown]
  - Flatulence [Unknown]
  - Constipation [Unknown]
  - Haemorrhoids [Unknown]
  - Pain in extremity [Unknown]
